FAERS Safety Report 15851643 (Version 2)
Quarter: 2019Q1

REPORT INFORMATION
  Report Type: Spontaneous
  Country: DE (occurrence: DE)
  Receive Date: 20190122
  Receipt Date: 20190328
  Transmission Date: 20190417
  Serious: Yes (Hospitalization)
  Sender: FDA-Public Use
  Company Number: DE-ACCORD-102671

PATIENT
  Age: 45 Year
  Sex: Female
  Weight: 72 kg

DRUGS (11)
  1. KEVATRIL [Concomitant]
     Active Substance: GRANISETRON HYDROCHLORIDE
     Indication: VOMITING
     Dosage: DAILY DOSE: 1 MG MILLGRAM(S) EVERY DAYS
     Route: 042
     Dates: start: 20140331, end: 20140721
  2. HERCEPTIN [Suspect]
     Active Substance: TRASTUZUMAB
     Indication: BREAST CANCER
     Dosage: ALSO TAKEN ON 04-JUN-2014 AND 21-JUL-2014?DAILY DOSE: 432 MG, 430 MG EVERY 3 WEEKS, 576 MG, 410 MG
     Route: 042
     Dates: start: 20140422, end: 20140512
  3. VENLAFAXINE/VENLAFAXINE HYDROCHLORIDE [Concomitant]
     Indication: DEPRESSION
     Dosage: DAILY DOSE: 150 MG MILLGRAM(S) EVERY DAYS
     Route: 048
     Dates: start: 2006
  4. PERJETA [Suspect]
     Active Substance: PERTUZUMAB
     Indication: BREAST CANCER
     Dosage: ALSO RECEIVED 22-APR-2014?DAILY DOSE: 840 MG, 420 MG EVERY 3 WEEKS
     Route: 042
     Dates: start: 20140331, end: 20140331
  5. QUETIAPINE/QUETIAPINE FUMARATE [Concomitant]
     Indication: DEPRESSION
     Dosage: DAILY DOSE: 25 MG MILLGRAM(S) EVERY DAYS
     Route: 048
     Dates: start: 2006
  6. MCP [Concomitant]
     Active Substance: METOCLOPRAMIDE HYDROCHLORIDE
     Indication: VOMITING
     Dosage: DAILY DOSE: 180 MG MILLGRAM(S) EVERY DAYS
     Route: 048
     Dates: start: 20140401, end: 20140722
  7. DEXAMETHASONE. [Concomitant]
     Active Substance: DEXAMETHASONE
     Indication: VOMITING
     Dosage: DAILY DOSE: 16 MG MILLGRAM(S) EVERY DAYS
     Route: 048
     Dates: start: 20140330, end: 20140722
  8. BISOPROLOL [Concomitant]
     Active Substance: BISOPROLOL
     Indication: HYPERTENSION
     Dosage: ALSO RECEIVED ON 12-JUN-2014?DAILY DOSE: 10 MG AND 20 MG EVERY DAYS
     Route: 048
     Dates: start: 2011, end: 20140611
  9. LONQUEX [Concomitant]
     Active Substance: LIPEGFILGRASTIM
     Indication: PROPHYLAXIS
     Dosage: DAY 2
     Route: 058
     Dates: start: 20140401, end: 20140722
  10. DOCETAXEL. [Suspect]
     Active Substance: DOCETAXEL
     Indication: BREAST CANCER
     Dosage: ALSO TAKEN 130 MG FROM 22-APR-2014?TO 21-JUL-2014
     Route: 042
     Dates: start: 20140322, end: 20140721
  11. RAMIPRIL. [Concomitant]
     Active Substance: RAMIPRIL
     Indication: HYPERTENSION
     Dosage: DAILY DOSE: 5 MG MILLGRAM(S) EVERY DAYS
     Route: 048
     Dates: start: 2011

REACTIONS (8)
  - Nausea [Recovered/Resolved]
  - Erysipelas [Recovered/Resolved]
  - Tachycardia [Recovered/Resolved]
  - General physical health deterioration [Recovering/Resolving]
  - Dizziness [Recovered/Resolved]
  - Neuropathy peripheral [Recovering/Resolving]
  - Vomiting [Recovered/Resolved]
  - Mucosal inflammation [Recovered/Resolved]

NARRATIVE: CASE EVENT DATE: 20140403
